FAERS Safety Report 10718383 (Version 2)
Quarter: 2015Q3

REPORT INFORMATION
  Report Type: Spontaneous
  Country: FR (occurrence: FR)
  Receive Date: 20150119
  Receipt Date: 20150904
  Transmission Date: 20151125
  Serious: Yes (Hospitalization, Other)
  Sender: FDA-Public Use
  Company Number: PHHY2014FR167191

PATIENT
  Age: 61 Year
  Sex: Male

DRUGS (3)
  1. SPIRAMYCIN+METRONIDAZOLE SANDOZ [Suspect]
     Active Substance: METRONIDAZOLE\SPIRAMYCIN
     Indication: TOOTH ABSCESS
     Dosage: 1 DF, TID (1 IN THE MORNING, 1 AT NOON AND 1 IN THE EVENING)
     Route: 048
     Dates: start: 20141201
  2. SOLUPRED [Concomitant]
     Active Substance: PREDNISOLONE
     Indication: PRODUCT USED FOR UNKNOWN INDICATION
     Route: 065
  3. PROBIOLOG [Concomitant]
     Indication: GASTROINTESTINAL DISORDER
     Route: 065

REACTIONS (6)
  - Diarrhoea [Recovered/Resolved]
  - Drug intolerance [Unknown]
  - Vomiting [Recovered/Resolved]
  - Malaise [Recovered/Resolved]
  - Cold sweat [Recovered/Resolved]
  - Nausea [Recovered/Resolved]

NARRATIVE: CASE EVENT DATE: 20141202
